FAERS Safety Report 22323246 (Version 1)
Quarter: 2023Q2

REPORT INFORMATION
  Report Type: Report from Study
  Country: US (occurrence: US)
  Receive Date: 20230516
  Receipt Date: 20230516
  Transmission Date: 20230722
  Serious: Yes (Other)
  Sender: FDA-Public Use
  Company Number: US-002147023-NVSC2023US108183

PATIENT
  Sex: Female
  Weight: 92.99 kg

DRUGS (16)
  1. COSENTYX [Suspect]
     Active Substance: SECUKINUMAB
     Indication: Psoriasis
     Dosage: 300 MG, QMO, 2 PENS (150 MG/ML)
     Route: 058
  2. COSENTYX [Suspect]
     Active Substance: SECUKINUMAB
     Indication: Psoriatic arthropathy
  3. METHOTREXATE [Suspect]
     Active Substance: METHOTREXATE
     Indication: Psoriasis
     Dosage: UNK (METHOTREXATE SODIUM 25 MG/ML)
     Route: 065
  4. METHOTREXATE [Suspect]
     Active Substance: METHOTREXATE
     Indication: Psoriatic arthropathy
  5. NAPROXEN [Suspect]
     Active Substance: NAPROXEN
     Indication: Psoriasis
     Dosage: UNK
     Route: 048
  6. NAPROXEN [Suspect]
     Active Substance: NAPROXEN
     Indication: Psoriatic arthropathy
  7. TRIAMTERENE [Suspect]
     Active Substance: TRIAMTERENE
     Indication: Psoriasis
     Dosage: UNK
     Route: 048
  8. TRIAMTERENE [Suspect]
     Active Substance: TRIAMTERENE
     Indication: Psoriatic arthropathy
  9. TRAMADOL [Suspect]
     Active Substance: TRAMADOL
     Indication: Psoriasis
     Dosage: UNK
     Route: 048
  10. TRAMADOL [Suspect]
     Active Substance: TRAMADOL
     Indication: Psoriatic arthropathy
  11. LEVOTHYROXINE [Suspect]
     Active Substance: LEVOTHYROXINE
     Indication: Psoriasis
     Dosage: UNK
     Route: 065
  12. LEVOTHYROXINE [Suspect]
     Active Substance: LEVOTHYROXINE
     Indication: Psoriatic arthropathy
  13. CLOBETASOL [Suspect]
     Active Substance: CLOBETASOL
     Indication: Psoriasis
     Dosage: UNK
     Route: 065
  14. CLOBETASOL [Suspect]
     Active Substance: CLOBETASOL
     Indication: Psoriatic arthropathy
  15. FOLIC ACID [Suspect]
     Active Substance: FOLIC ACID
     Indication: Psoriasis
     Dosage: 1 MG
     Route: 048
  16. FOLIC ACID [Suspect]
     Active Substance: FOLIC ACID
     Indication: Psoriatic arthropathy

REACTIONS (6)
  - Psoriatic arthropathy [Unknown]
  - Psoriasis [Unknown]
  - Pruritus [Unknown]
  - Skin exfoliation [Unknown]
  - Product use in unapproved indication [Unknown]
  - Drug ineffective [Unknown]
